FAERS Safety Report 23703829 (Version 1)
Quarter: 2024Q2

REPORT INFORMATION
  Report Type: Spontaneous
  Country: US (occurrence: US)
  Receive Date: 20240403
  Receipt Date: 20240403
  Transmission Date: 20240716
  Serious: No
  Sender: FDA-Public Use
  Company Number: US-Blueprint Medicines Corporation-2974

PATIENT
  Age: 44 Year
  Sex: Female

DRUGS (1)
  1. AYVAKIT [Suspect]
     Active Substance: AVAPRITINIB
     Indication: Advanced systemic mastocytosis
     Route: 065
     Dates: start: 20220722

REACTIONS (5)
  - Osteoarthritis [Unknown]
  - Chondropathy [Unknown]
  - Bone pain [Unknown]
  - Constipation [Unknown]
  - Product dose omission issue [Unknown]

NARRATIVE: CASE EVENT DATE: 20240301
